FAERS Safety Report 6828350-X (Version None)
Quarter: 2010Q3

REPORT INFORMATION
  Report Type: 
  Country: None (occurrence: None)
  Receive Date: 20100708
  Receipt Date: 20100708
  Transmission Date: 20110219
  Serious: Yes (Other)
  Sender: FDA-Public Use
  Company Number: None

PATIENT
  Sex: Male
  Weight: 108.4097 kg

DRUGS (1)
  1. ELOXATIN [Suspect]
     Indication: RECTAL CANCER
     Dosage: 178MG EVERY 14 DAYS X 4 IV
     Route: 042
     Dates: start: 20100707, end: 20100707

REACTIONS (2)
  - INFUSION RELATED REACTION [None]
  - PRODUCT SUBSTITUTION ISSUE [None]
